FAERS Safety Report 7435015-2 (Version None)
Quarter: 2011Q2

REPORT INFORMATION
  Report Type: 
  Country: None (occurrence: None)
  Receive Date: 20110418
  Receipt Date: 20110407
  Transmission Date: 20111010
  Serious: Yes (Hospitalization)
  Sender: FDA-Public Use
  Company Number: 1000019959

PATIENT
  Age: 45 Year
  Sex: Female

DRUGS (6)
  1. SAVELLA [Suspect]
     Indication: FIBROMYALGIA
     Dosage: 12.5 MG (12.5 MG, 1 IN 1 D), ORAL, 25 MG (12.5 MG,2 IN 1 D),ORAL, 50 MG (25 MG,2 IN 1 D),ORAL
     Route: 048
     Dates: start: 20100101, end: 20100101
  2. SAVELLA [Suspect]
     Indication: FIBROMYALGIA
     Dosage: 12.5 MG (12.5 MG, 1 IN 1 D), ORAL, 25 MG (12.5 MG,2 IN 1 D),ORAL, 50 MG (25 MG,2 IN 1 D),ORAL
     Route: 048
     Dates: start: 20100101, end: 20100101
  3. SAVELLA [Suspect]
     Indication: FIBROMYALGIA
     Dosage: 12.5 MG (12.5 MG, 1 IN 1 D), ORAL, 25 MG (12.5 MG,2 IN 1 D),ORAL, 50 MG (25 MG,2 IN 1 D),ORAL
     Route: 048
     Dates: start: 20101101, end: 20101101
  4. SAVELLA [Suspect]
     Indication: FIBROMYALGIA
     Dosage: 50 MG (50 MG, 2 IN 1 D),ORAL
     Route: 048
     Dates: start: 20110301, end: 20110301
  5. SAVELLA [Suspect]
     Indication: FIBROMYALGIA
     Dosage: 100 MG (50 MG,2 IN 1 D),ORAL
     Route: 048
     Dates: start: 20100101, end: 20101201
  6. NEURONTIN [Concomitant]

REACTIONS (1)
  - PANCREATITIS [None]
